FAERS Safety Report 22153204 (Version 4)
Quarter: 2023Q2

REPORT INFORMATION
  Report Type: Spontaneous
  Country: US (occurrence: US)
  Receive Date: 20230329
  Receipt Date: 20230620
  Transmission Date: 20230722
  Serious: No
  Sender: FDA-Public Use
  Company Number: US-PFIZER INC-202300127003

PATIENT
  Age: 5 Year
  Sex: Female
  Weight: 13.61 kg

DRUGS (1)
  1. GENOTROPIN [Suspect]
     Active Substance: SOMATROPIN
     Indication: Growth hormone deficiency
     Dosage: 0.5 MG, DAILY (QHS, EVERY NIGHT)
     Dates: start: 20230319

REACTIONS (7)
  - Wrong technique in device usage process [Unknown]
  - Poor quality device used [Unknown]
  - Product quality issue [Unknown]
  - Device leakage [Unknown]
  - Device malfunction [Unknown]
  - Injection site pain [Unknown]
  - Muscle spasms [Unknown]

NARRATIVE: CASE EVENT DATE: 20230319
